FAERS Safety Report 6859045-4 (Version None)
Quarter: 2010Q3

REPORT INFORMATION
  Report Type: 
  Country: None (occurrence: None)
  Receive Date: 20100719
  Receipt Date: 20080219
  Transmission Date: 20110219
  Serious: No
  Sender: FDA-Public Use
  Company Number: US-PFIZER INC-2008017127

PATIENT
  Sex: Male
  Weight: 95.5 kg

DRUGS (3)
  1. CHANTIX [Suspect]
     Indication: SMOKING CESSATION THERAPY
     Dates: start: 20080218
  2. PAROXETINE [Concomitant]
  3. GABAPENTIN [Concomitant]

REACTIONS (2)
  - HEADACHE [None]
  - NIGHTMARE [None]
